FAERS Safety Report 21346840 (Version 1)
Quarter: 2022Q3

REPORT INFORMATION
  Report Type: Spontaneous
  Country: DE (occurrence: DE)
  Receive Date: 20220918
  Receipt Date: 20220918
  Transmission Date: 20221027
  Serious: Yes (Hospitalization)
  Sender: FDA-Public Use
  Company Number: DE-NOVARTISPH-NVSC2022DE205707

PATIENT
  Age: 79 Year
  Sex: Female

DRUGS (18)
  1. PREDNISOLONE [Suspect]
     Active Substance: PREDNISOLONE
     Indication: Product used for unknown indication
     Dosage: 10 MG, QD (1-0-0-0)
     Route: 048
  2. MIRTAZAPINE [Suspect]
     Active Substance: MIRTAZAPINE
     Indication: Product used for unknown indication
     Dosage: 30 MG, QD (0-0-0-0.5)
     Route: 048
  3. FOSFOMYCIN [Suspect]
     Active Substance: FOSFOMYCIN
     Indication: Product used for unknown indication
     Dosage: 3 MG
     Route: 065
  4. EDOXABAN [Suspect]
     Active Substance: EDOXABAN
     Indication: Product used for unknown indication
     Dosage: 30 MG, QD (1-0-0-0)
     Route: 048
  5. NALOXONE [Concomitant]
     Active Substance: NALOXONE
     Indication: Product used for unknown indication
     Dosage: 9|4.5 MG, BID (1-0-1-0)
     Route: 048
  6. METOPROLOL [Concomitant]
     Active Substance: METOPROLOL
     Indication: Product used for unknown indication
     Dosage: 95 MG, BID ( 1-0-1-0)
     Route: 048
  7. METOPROLOL [Concomitant]
     Active Substance: METOPROLOL
     Dosage: 47.5 MG, BID (1.5-0-1.5-0)
     Route: 065
  8. ESCITALOPRAM [Concomitant]
     Active Substance: ESCITALOPRAM OXALATE
     Indication: Product used for unknown indication
     Dosage: 5 MG
     Route: 065
  9. MIRTAZAPINE [Concomitant]
     Active Substance: MIRTAZAPINE
     Indication: Product used for unknown indication
     Dosage: 30 MG ( BEI BEDARF)
     Route: 048
  10. MCP STADA [Concomitant]
     Indication: Product used for unknown indication
     Dosage: 10 MG (BEI BEDARF)
     Route: 048
  11. ATORVASTATIN [Concomitant]
     Active Substance: ATORVASTATIN
     Indication: Product used for unknown indication
     Dosage: 80 MG, QD (0-0-1-0)
     Route: 048
  12. MOVICOL [Concomitant]
     Active Substance: POLYETHYLENE GLYCOL 3350\POTASSIUM CHLORIDE\SODIUM BICARBONATE\SODIUM CHLORIDE
     Indication: Product used for unknown indication
     Dosage: BEI VERSTOPFUNG
     Route: 048
  13. LEVOTHYROXINE SODIUM [Concomitant]
     Active Substance: LEVOTHYROXINE SODIUM
     Indication: Product used for unknown indication
     Dosage: 100 ?G, QD (1-0-0-0)
     Route: 048
  14. OXYCODONE [Concomitant]
     Active Substance: OXYCODONE
     Indication: Product used for unknown indication
     Dosage: 5 MG, BID (1-0-1-0)
     Route: 048
  15. RAMIPRIL [Concomitant]
     Active Substance: RAMIPRIL
     Indication: Product used for unknown indication
     Dosage: 5 MG, QD  (0-0-0.5-0)
     Route: 048
  16. PANTOPRAZOLE [Concomitant]
     Active Substance: PANTOPRAZOLE
     Indication: Product used for unknown indication
     Dosage: 40 MG
     Route: 065
  17. TORSEMIDE [Concomitant]
     Active Substance: TORSEMIDE
     Indication: Product used for unknown indication
     Dosage: 10 MG, QD (1-0-0-0)
     Route: 048
  18. DRONEDARONA [Concomitant]
     Indication: Product used for unknown indication
     Dosage: 400 MG, BID (1-0-1-0)
     Route: 048

REACTIONS (6)
  - Hypotension [Unknown]
  - Anaemia [Unknown]
  - Dyspnoea [Unknown]
  - General physical health deterioration [Unknown]
  - Somnolence [Unknown]
  - Diarrhoea [Unknown]
